FAERS Safety Report 8829603 (Version 1)
Quarter: 2012Q4

REPORT INFORMATION
  Report Type: 
  Country: US (occurrence: US)
  Receive Date: 20121008
  Receipt Date: 20121008
  Transmission Date: 20130627
  Serious: No
  Sender: FDA-Public Use
  Company Number: US-TEVA-356964USA

PATIENT
  Age: 29 Year
  Sex: Male
  Weight: 88.53 kg

DRUGS (4)
  1. QVAR [Suspect]
     Indication: ASTHMA
     Dosage: 320 Microgram Daily; 2 puffs BID
     Route: 055
  2. VENTOLIN [Concomitant]
     Indication: ASTHMA
     Dosage: 360 Microgram Daily;
     Route: 055
  3. FEXOFENADINE [Concomitant]
     Indication: HYPERSENSITIVITY
     Dosage: 1 Dosage forms Daily;
     Route: 048
  4. IMIQUIMOD [Concomitant]
     Indication: SKIN PAPILLOMA
     Route: 061

REACTIONS (1)
  - Blood testosterone increased [Unknown]
